FAERS Safety Report 4862108-6 (Version None)
Quarter: 2005Q4

REPORT INFORMATION
  Report Type: 
  Country: None (occurrence: None)
  Receive Date: 20051130
  Receipt Date: 20050112
  Transmission Date: 20060501
  Serious: Yes (Hospitalization, Other)
  Sender: FDA-Public Use
  Company Number: PHEH2003US06229

PATIENT
  Age: 22 Year
  Sex: Male
  Weight: 68.9 kg

DRUGS (2)
  1. LAMISIL [Suspect]
     Indication: BODY TINEA
     Dosage: 250 MG, QD, ORAL
     Route: 048
     Dates: start: 20030711, end: 20030716
  2. MENTAX ^PENEDERM^ (BUTENAFINE HYDROCHLORIDE) [Concomitant]

REACTIONS (6)
  - ABDOMINAL PAIN [None]
  - HEPATIC ENZYME INCREASED [None]
  - HEPATITIS [None]
  - JAUNDICE [None]
  - MONONUCLEOSIS SYNDROME [None]
  - NAUSEA [None]
